FAERS Safety Report 7129057-4 (Version None)
Quarter: 2010Q4

REPORT INFORMATION
  Report Type: 
  Country: None (occurrence: None)
  Receive Date: 20101104
  Receipt Date: 20101027
  Transmission Date: 20110411
  Serious: Yes (Hospitalization, Other)
  Sender: FDA-Public Use
  Company Number: 2010SP025302

PATIENT
  Age: 36 Year
  Sex: Female
  Weight: 61.2356 kg

DRUGS (3)
  1. NUVARING [Suspect]
     Indication: CONTRACEPTION
     Dosage: VAG
     Route: 067
     Dates: start: 20060401, end: 20070301
  2. NUVARING [Suspect]
     Indication: DYSMENORRHOEA
     Dosage: VAG
     Route: 067
     Dates: start: 20060401, end: 20070301
  3. BIRTH CONTROL PILLS [Suspect]

REACTIONS (28)
  - ABDOMINAL PAIN [None]
  - ATELECTASIS [None]
  - BLOOD CHOLESTEROL INCREASED [None]
  - CHILLS [None]
  - COGNITIVE DISORDER [None]
  - CONDITION AGGRAVATED [None]
  - CONNECTIVE TISSUE DISORDER [None]
  - DEPRESSION [None]
  - EMOTIONAL DISORDER [None]
  - FLANK PAIN [None]
  - FOLATE DEFICIENCY [None]
  - HAEMATURIA [None]
  - HEADACHE [None]
  - HYPERTENSION [None]
  - LYMPHOCYTOSIS [None]
  - MYOCARDIAL INFARCTION [None]
  - NEPHROTIC SYNDROME [None]
  - NORMOCHROMIC NORMOCYTIC ANAEMIA [None]
  - OVARIAN CYST [None]
  - PLEURAL EFFUSION [None]
  - PNEUMONIA [None]
  - POST PROCEDURAL COMPLICATION [None]
  - PROTEINURIA [None]
  - PULMONARY EMBOLISM [None]
  - PYELONEPHRITIS ACUTE [None]
  - RENAL DISORDER [None]
  - SURGICAL PROCEDURE REPEATED [None]
  - URINARY TRACT INFECTION [None]
